FAERS Safety Report 19174704 (Version 15)
Quarter: 2022Q1

REPORT INFORMATION
  Report Type: Report from Study
  Country: JP (occurrence: JP)
  Receive Date: 20210423
  Receipt Date: 20220330
  Transmission Date: 20220423
  Serious: Yes (Hospitalization, Other)
  Sender: FDA-Public Use
  Company Number: JP-BRISTOL-MYERS SQUIBB COMPANY-BMS-2020-005592

PATIENT
  Age: 66 Year
  Sex: Female
  Weight: 49.3 kg

DRUGS (14)
  1. OPDIVO [Suspect]
     Active Substance: NIVOLUMAB
     Indication: Metastatic renal cell carcinoma
     Dosage: 240 MILLIGRAM
     Route: 041
     Dates: start: 20200108, end: 20200108
  2. OPDIVO [Suspect]
     Active Substance: NIVOLUMAB
     Dosage: UNK
     Route: 041
     Dates: start: 2020
  3. OPDIVO [Suspect]
     Active Substance: NIVOLUMAB
     Dosage: UNK
     Route: 041
     Dates: start: 20200727
  4. YERVOY [Suspect]
     Active Substance: IPILIMUMAB
     Indication: Metastatic renal cell carcinoma
     Dosage: 1 MILLIGRAM/KILOGRAM
     Route: 041
     Dates: start: 20200108, end: 20200108
  5. PREDNISOLONE [Suspect]
     Active Substance: PREDNISOLONE
     Indication: Immune-mediated hepatitis
     Dosage: 40 MG, EVERYDAY
     Route: 048
     Dates: start: 20200122, end: 20200129
  6. PREDNISOLONE [Suspect]
     Active Substance: PREDNISOLONE
     Indication: Hepatic function abnormal
     Dosage: 30 MG, EVERYDAY
     Route: 048
     Dates: start: 20200130, end: 20200205
  7. PREDNISOLONE [Suspect]
     Active Substance: PREDNISOLONE
     Dosage: 25 MG, EVERYDAY
     Route: 048
     Dates: start: 20200206, end: 20200220
  8. PREDNISOLONE [Suspect]
     Active Substance: PREDNISOLONE
     Dosage: 20 MG, EVERYDAY
     Route: 048
     Dates: start: 20200221, end: 20200305
  9. PREDNISOLONE [Suspect]
     Active Substance: PREDNISOLONE
     Dosage: 15 MG, EVERYDAY
     Route: 048
     Dates: start: 20200306, end: 20200322
  10. PREDNISOLONE [Suspect]
     Active Substance: PREDNISOLONE
     Dosage: 10 MG, EVERYDAY
     Route: 048
     Dates: start: 20200323, end: 20200402
  11. PREDNISOLONE [Suspect]
     Active Substance: PREDNISOLONE
     Dosage: 5 MG, EVERYDAY
     Route: 048
     Dates: start: 20200403, end: 20200424
  12. PREDNISOLONE [Suspect]
     Active Substance: PREDNISOLONE
     Dosage: 30 MILLIGRAM, QD
     Route: 048
     Dates: start: 20200131, end: 20200303
  13. PREDNISOLONE [Suspect]
     Active Substance: PREDNISOLONE
     Dosage: 20 MILLIGRAM, QD
     Route: 048
     Dates: start: 20200304, end: 20210113
  14. SOLU-MEDROL [Suspect]
     Active Substance: METHYLPREDNISOLONE SODIUM SUCCINATE
     Indication: Immune-mediated hepatitis
     Dosage: 1000 MG, EVERYDAY
     Route: 042
     Dates: start: 20200119, end: 20200121

REACTIONS (4)
  - Immune-mediated hepatitis [Recovered/Resolved]
  - Cough [Recovered/Resolved]
  - Rash [Recovered/Resolved]
  - Steroid diabetes [Recovering/Resolving]

NARRATIVE: CASE EVENT DATE: 20200114
